FAERS Safety Report 18287888 (Version 1)
Quarter: 2020Q3

REPORT INFORMATION
  Report Type: Spontaneous
  Country: US (occurrence: US)
  Receive Date: 20200918
  Receipt Date: 20200918
  Transmission Date: 20201103
  Serious: Yes (Other)
  Sender: FDA-Public Use
  Company Number: None

PATIENT
  Age: 48 Year
  Sex: Female
  Weight: 72.57 kg

DRUGS (1)
  1. SYSTANE ULTRA [Suspect]
     Active Substance: POLYETHYLENE GLYCOL 400\PROPYLENE GLYCOL
     Indication: DRY EYE
     Dosage: ?          OTHER DOSE:1?2 DROPS;?
     Route: 047
     Dates: start: 20200806

REACTIONS (5)
  - Hypersensitivity [None]
  - Vision blurred [None]
  - Dizziness [None]
  - Blindness transient [None]
  - Vertigo [None]

NARRATIVE: CASE EVENT DATE: 20200806
